FAERS Safety Report 9071107 (Version 1)
Quarter: 2013Q1

REPORT INFORMATION
  Report Type: Spontaneous
  Country: US (occurrence: US)
  Receive Date: 20130206
  Receipt Date: 20130206
  Transmission Date: 20140127
  Serious: No
  Sender: FDA-Public Use
  Company Number: US-ALLERGAN-1208727US

PATIENT
  Age: 75 Year
  Sex: Female

DRUGS (6)
  1. RESTASIS? [Suspect]
     Indication: LACRIMATION INCREASED
     Dosage: 2 GTT, BID
     Route: 047
     Dates: start: 201204
  2. MONOPRIL                           /00915301/ [Concomitant]
     Indication: HYPERTENSION
     Route: 048
  3. BABY ASA [Concomitant]
     Indication: PROPHYLAXIS
     Dosage: 81 MG, UNK
     Route: 048
  4. SYNTHROID [Concomitant]
     Indication: HYPOTHYROIDISM
     Route: 048
  5. TENORMIN [Concomitant]
     Indication: HEART RATE IRREGULAR
     Dosage: UNK
     Route: 048
  6. SYSTANE [Concomitant]
     Indication: DRY EYE
     Dosage: 2 GTT, UNK
     Route: 047

REACTIONS (5)
  - Ocular icterus [Recovered/Resolved]
  - Off label use [Unknown]
  - Vision blurred [Recovered/Resolved]
  - Lacrimation increased [Recovered/Resolved]
  - Eye pain [Recovered/Resolved]
